FAERS Safety Report 6010022-5 (Version None)
Quarter: 2008Q4

REPORT INFORMATION
  Report Type: 
  Country: None (occurrence: None)
  Receive Date: 20081218
  Receipt Date: 20081212
  Transmission Date: 20090506
  Serious: Yes (Hospitalization, Other)
  Sender: FDA-Public Use
  Company Number: US-PFIZER INC-2008047433

PATIENT
  Sex: Female
  Weight: 115.21 kg

DRUGS (15)
  1. BLINDED *PLACEBO [Suspect]
     Indication: OSTEOARTHRITIS
     Dosage: UNK
     Route: 048
     Dates: start: 20070516
  2. CELECOXIB [Suspect]
     Indication: OSTEOARTHRITIS
     Dosage: UNK
     Route: 048
     Dates: start: 20070516
  3. BLINDED IBUPROFEN [Suspect]
     Indication: OSTEOARTHRITIS
     Dosage: UNK
     Route: 048
     Dates: start: 20070516
  4. BLINDED NAPROXEN [Suspect]
     Indication: OSTEOARTHRITIS
     Dosage: UNK
     Route: 048
     Dates: start: 20070516
  5. NEXIUM [Concomitant]
     Route: 048
     Dates: start: 20070517
  6. ADVAIR DISKUS 100/50 [Concomitant]
     Route: 055
     Dates: start: 20060727
  7. ALBUTEROL [Concomitant]
     Route: 055
     Dates: start: 20080520
  8. SPIRIVA [Concomitant]
     Route: 055
     Dates: start: 20080520
  9. PREDNISONE TAB [Concomitant]
     Route: 048
     Dates: start: 20080227
  10. HYDROCHLOROTHIAZIDE [Concomitant]
     Route: 048
     Dates: start: 20080223
  11. GLYBURIDE [Concomitant]
     Route: 048
     Dates: start: 20060223
  12. LOTREL [Concomitant]
     Route: 048
     Dates: start: 20080302
  13. INSULIN ASPART [Concomitant]
     Route: 058
  14. MICRO-K [Concomitant]
     Route: 048
     Dates: start: 20080302
  15. MEDROL [Concomitant]
     Route: 048

REACTIONS (1)
  - ASTHMA [None]
